FAERS Safety Report 12396141 (Version 2)
Quarter: 2016Q2

REPORT INFORMATION
  Report Type: Spontaneous
  Country: US (occurrence: US)
  Receive Date: 20160524
  Receipt Date: 20160524
  Transmission Date: 20160815
  Serious: No
  Sender: FDA-Public Use
  Company Number: US-CIPLA LTD.-2016US05193

PATIENT

DRUGS (1)
  1. TOPIRAMATE. [Suspect]
     Active Substance: TOPIRAMATE
     Dosage: UNKNOWN
     Route: 065

REACTIONS (5)
  - Pain [Unknown]
  - Thinking abnormal [Unknown]
  - Amnesia [Unknown]
  - Decreased appetite [Unknown]
  - Headache [Unknown]
